FAERS Safety Report 4476370-5 (Version None)
Quarter: 2004Q4

REPORT INFORMATION
  Report Type: 
  Country: None (occurrence: None)
  Receive Date: 20041016
  Receipt Date: 20041012
  Transmission Date: 20050328
  Serious: Yes (Disabling)
  Sender: FDA-Public Use
  Company Number: DE-MERCK-0410DEU00408

PATIENT
  Age: 50 Year
  Sex: Female

DRUGS (2)
  1. VIOXX [Suspect]
     Indication: LOCALISED OSTEOARTHRITIS
     Route: 048
  2. VIOXX [Suspect]
     Indication: BACK DISORDER
     Route: 048

REACTIONS (2)
  - THROMBOSIS [None]
  - VENOUS THROMBOSIS LIMB [None]
